FAERS Safety Report 7873788-5 (Version None)
Quarter: 2011Q4

REPORT INFORMATION
  Report Type: 
  Country: None (occurrence: None)
  Receive Date: 20111030
  Receipt Date: 20110510
  Transmission Date: 20120403
  Serious: No
  Sender: FDA-Public Use
  Company Number: US-AMGEN-USASP2011024260

PATIENT
  Age: 71 Year
  Sex: Female
  Weight: 115 kg

DRUGS (8)
  1. PLAQUENIL [Concomitant]
     Dosage: 200 MG, UNK
  2. MELATONIN [Concomitant]
     Dosage: 1 MG, UNK
  3. TYLENOL (CAPLET) [Concomitant]
     Dosage: 650 MG, UNK
  4. BONIVA [Concomitant]
     Dosage: 2.5 MG, UNK
  5. LEVOTHYROXINE SODIUM [Concomitant]
  6. CALCIUM [Concomitant]
     Dosage: 600 MG, UNK
  7. MULTIVITAMIN                       /00097801/ [Concomitant]
  8. ENBREL [Suspect]
     Indication: PRODUCT USED FOR UNKNOWN INDICATION
     Dosage: 50 MG, QWK
     Route: 058

REACTIONS (1)
  - PRURITUS [None]
